FAERS Safety Report 8912881 (Version 2)
Quarter: 2013Q1

REPORT INFORMATION
  Report Type: Spontaneous
  Country: US (occurrence: US)
  Receive Date: 20121116
  Receipt Date: 20130211
  Transmission Date: 20140127
  Serious: Yes (Death, Hospitalization)
  Sender: FDA-Public Use
  Company Number: US-GLAXOSMITHKLINE-A1000265A

PATIENT
  Age: 56 Year
  Sex: Female

DRUGS (7)
  1. LAMICTAL [Suspect]
     Indication: LENNOX-GASTAUT SYNDROME
     Dosage: 300MG TWICE PER DAY
     Route: 048
  2. NEURONTIN [Concomitant]
  3. DILANTIN [Concomitant]
  4. VITAMINS [Concomitant]
  5. SYNTHROID [Concomitant]
  6. FISH OIL [Concomitant]
  7. CALCIUM [Concomitant]

REACTIONS (5)
  - Convulsion [Unknown]
  - Subdural haematoma [Fatal]
  - Fall [Unknown]
  - Head injury [Unknown]
  - Adverse event [Unknown]
